FAERS Safety Report 9391979 (Version 1)
Quarter: 2013Q3

REPORT INFORMATION
  Report Type: Report from Study
  Country: US (occurrence: US)
  Receive Date: 20130709
  Receipt Date: 20130709
  Transmission Date: 20140515
  Serious: Yes (Other)
  Sender: FDA-Public Use
  Company Number: US-ACTELION-A-NJ2013-85626

PATIENT
  Age: 79 Year
  Sex: Female

DRUGS (2)
  1. VENTAVIS [Suspect]
     Indication: PULMONARY ARTERIAL HYPERTENSION
     Route: 055
  2. TYVASO [Concomitant]

REACTIONS (3)
  - Haemorrhage [Unknown]
  - Anaemia [Unknown]
  - Packed red blood cell transfusion [Unknown]
